FAERS Safety Report 5030174-3 (Version None)
Quarter: 2006Q2

REPORT INFORMATION
  Report Type: 
  Country: None (occurrence: None)
  Receive Date: 20060614
  Receipt Date: 20060606
  Transmission Date: 20061013
  Serious: Yes (Other)
  Sender: FDA-Public Use
  Company Number: 2006044039

PATIENT
  Age: 77 Year
  Sex: Male

DRUGS (2)
  1. VIAGRA [Suspect]
     Indication: ERECTILE DYSFUNCTION
     Dosage: AS NECESSARY, ORAL
     Route: 048
     Dates: start: 20041201, end: 20060301
  2. INDAPAMIDE [Concomitant]

REACTIONS (6)
  - DIPLOPIA [None]
  - NERVOUS SYSTEM DISORDER [None]
  - OPTIC ISCHAEMIC NEUROPATHY [None]
  - SCOTOMA [None]
  - VISUAL ACUITY REDUCED [None]
  - VISUAL FIELD DEFECT [None]
